FAERS Safety Report 21042767 (Version 3)
Quarter: 2022Q4

REPORT INFORMATION
  Report Type: Report from Study
  Country: MX (occurrence: MX)
  Receive Date: 20220705
  Receipt Date: 20221203
  Transmission Date: 20230113
  Serious: Yes (Life-Threatening, Hospitalization)
  Sender: FDA-Public Use
  Company Number: MX-NOVARTISPH-NVSC2022MX152672

PATIENT
  Age: 29 Year
  Sex: Female
  Weight: 64 kg

DRUGS (5)
  1. GILENYA [Suspect]
     Active Substance: FINGOLIMOD HYDROCHLORIDE
     Indication: Multiple sclerosis
     Dosage: 0.5 MG, QD
     Route: 048
     Dates: start: 202203, end: 20220701
  2. GILENYA [Suspect]
     Active Substance: FINGOLIMOD HYDROCHLORIDE
     Dosage: 0.5 MG, EVERY THIRD DAY
     Route: 048
  3. GILENYA [Suspect]
     Active Substance: FINGOLIMOD HYDROCHLORIDE
     Dosage: 0.5 MG, QOD
     Route: 048
     Dates: start: 202209, end: 202210
  4. GILENYA [Suspect]
     Active Substance: FINGOLIMOD HYDROCHLORIDE
     Dosage: 0.5 MG, QD
     Route: 048
     Dates: start: 202210
  5. LEVOTHYROXINE [Concomitant]
     Active Substance: LEVOTHYROXINE
     Indication: Hypothyroidism
     Dosage: UNK (SINCE THE  PATIENT WAS  17 YEARS  OLD)
     Route: 048

REACTIONS (7)
  - Gallbladder disorder [Recovered/Resolved]
  - Pallor [Not Recovered/Not Resolved]
  - Liver injury [Not Recovered/Not Resolved]
  - Hepatic pain [Recovering/Resolving]
  - Cholelithiasis [Recovered/Resolved]
  - Discomfort [Recovering/Resolving]
  - Off label use [Unknown]

NARRATIVE: CASE EVENT DATE: 20220701
